FAERS Safety Report 7993726-4 (Version None)
Quarter: 2011Q4

REPORT INFORMATION
  Report Type: 
  Country: None (occurrence: None)
  Receive Date: 20111220
  Receipt Date: 20111215
  Transmission Date: 20120403
  Serious: Yes (Other)
  Sender: FDA-Public Use
  Company Number: US-BRISTOL-MYERS SQUIBB COMPANY-16207896

PATIENT

DRUGS (1)
  1. RECOTHROM [Suspect]
     Indication: OPERATIVE HAEMORRHAGE
     Dosage: INJECTION
     Route: 051

REACTIONS (1)
  - DRUG ADMINISTRATION ERROR [None]
